FAERS Safety Report 5889656-4 (Version None)
Quarter: 2008Q3

REPORT INFORMATION
  Report Type: 
  Country: None (occurrence: None)
  Receive Date: 20080919
  Receipt Date: 20080911
  Transmission Date: 20090109
  Serious: Yes (Hospitalization, Other)
  Sender: FDA-Public Use
  Company Number: US-AMGEN-QUU307127

PATIENT
  Sex: Female

DRUGS (5)
  1. NEULASTA [Suspect]
     Indication: CHEMOTHERAPY
  2. ADRIAMYCIN PFS [Concomitant]
  3. TAXOL [Concomitant]
  4. UNSPECIFIED ANTIBIOTIC [Concomitant]
  5. RADIATION THERAPY [Concomitant]

REACTIONS (6)
  - ARTHRALGIA [None]
  - DYSARTHRIA [None]
  - FUNGAL INFECTION [None]
  - MENTAL IMPAIRMENT [None]
  - SPEECH DISORDER [None]
  - WHITE BLOOD CELL COUNT DECREASED [None]
